FAERS Safety Report 5489492-7 (Version None)
Quarter: 2007Q4

REPORT INFORMATION
  Report Type: 
  Country: None (occurrence: None)
  Receive Date: 20071016
  Receipt Date: 20071016
  Transmission Date: 20080405
  Serious: Yes (Hospitalization)
  Sender: FDA-Public Use
  Company Number: None

PATIENT
  Sex: Female
  Weight: 59.4 kg

DRUGS (14)
  1. CARBOPLATIN [Suspect]
     Dosage: 823 MG
  2. TAXOTERE [Suspect]
     Dosage: 126 MG
  3. TAXOL [Suspect]
     Dosage: 101 MG
  4. AMEND [Concomitant]
  5. ATIVAN [Concomitant]
  6. COMPAZINE [Concomitant]
  7. DEXAMETHESONE [Concomitant]
  8. FLEXERIL [Concomitant]
  9. LEVOTHYROXINE SODIUM [Concomitant]
  10. MULTI-VITAMIN [Concomitant]
  11. PERCOCET [Concomitant]
  12. PHENERGAN HCL [Concomitant]
  13. SENOKOT [Concomitant]
  14. ZOFRAN [Concomitant]

REACTIONS (10)
  - ALANINE AMINOTRANSFERASE INCREASED [None]
  - ASPARTATE AMINOTRANSFERASE INCREASED [None]
  - BLOOD ALKALINE PHOSPHATASE INCREASED [None]
  - CHILLS [None]
  - HAEMOGLOBIN ABNORMAL [None]
  - HEPATIC ENZYME INCREASED [None]
  - NEUTROPHIL COUNT ABNORMAL [None]
  - OTITIS MEDIA [None]
  - PYREXIA [None]
  - WHITE BLOOD CELL COUNT ABNORMAL [None]
